FAERS Safety Report 5097281-0 (Version None)
Quarter: 2006Q3

REPORT INFORMATION
  Report Type: 
  Country: None (occurrence: None)
  Receive Date: 20060906
  Receipt Date: 20060825
  Transmission Date: 20061208
  Serious: Yes (Hospitalization, Other)
  Sender: FDA-Public Use
  Company Number: PHEH2006US11037

PATIENT
  Age: 54 Year
  Sex: Male

DRUGS (11)
  1. NEORAL [Suspect]
     Indication: RENAL TRANSPLANT
     Dosage: 50 MG, BID
     Route: 048
     Dates: start: 20060701
  2. NEORAL [Suspect]
     Dosage: UNK, UNK
     Route: 048
     Dates: start: 20040101
  3. PREDNISONE TAB [Concomitant]
  4. VYTORIN [Concomitant]
  5. ASPIRIN [Concomitant]
  6. SYNTHROID [Concomitant]
  7. CLONIDINE [Concomitant]
  8. LYRICA [Concomitant]
  9. BENICAR [Concomitant]
  10. KEPPRA [Concomitant]
  11. PHENOBARBITAL TAB [Concomitant]

REACTIONS (10)
  - ASTROCYTOMA [None]
  - CHILLS [None]
  - COMPUTERISED TOMOGRAM ABNORMAL [None]
  - DIABETES MELLITUS [None]
  - LUNG NEOPLASM [None]
  - NEUROPATHY [None]
  - PULMONARY CALCIFICATION [None]
  - PULMONARY GRANULOMA [None]
  - TRANSPLANT REJECTION [None]
  - VIRUS SEROLOGY TEST POSITIVE [None]
